FAERS Safety Report 10724508 (Version 1)
Quarter: 2015Q1

REPORT INFORMATION
  Report Type: Spontaneous
  Country: US (occurrence: None)
  Receive Date: 20150116
  Receipt Date: 20150116
  Transmission Date: 20150721
  Serious: Yes (Life-Threatening, Hospitalization)
  Sender: FDA-Public Use
  Company Number: None

PATIENT
  Age: 69 Year
  Sex: Female
  Weight: 72.58 kg

DRUGS (13)
  1. VITAMIN C [Concomitant]
     Active Substance: ASCORBIC ACID
  2. CIPROFLOXACIN HCL [Suspect]
     Active Substance: CIPROFLOXACIN HYDROCHLORIDE
     Indication: HAEMATOCHEZIA
     Dosage: 500 MG?1 TAB.?2X/DAY EVERY 12 HOURS?MOUTH??SEIZURE 21 DAYS LATER.
     Route: 048
     Dates: start: 20141110, end: 20141119
  3. ASPIRIN. [Concomitant]
     Active Substance: ASPIRIN
  4. ACYCLOVIR. [Concomitant]
     Active Substance: ACYCLOVIR
  5. VIMPAT [Concomitant]
     Active Substance: LACOSAMIDE
  6. VITAMIN D [Concomitant]
     Active Substance: CHOLECALCIFEROL
  7. METAMUCIL [Concomitant]
     Active Substance: PLANTAGO SEED
  8. CIPROFLOXACIN HCL [Suspect]
     Active Substance: CIPROFLOXACIN HYDROCHLORIDE
     Indication: BACTERIAL DIARRHOEA
     Dosage: 500 MG?1 TAB.?2X/DAY EVERY 12 HOURS?MOUTH??SEIZURE 21 DAYS LATER.
     Route: 048
     Dates: start: 20141110, end: 20141119
  9. CALCIUM [Concomitant]
     Active Substance: CALCIUM
  10. SIMVASTATIN. [Concomitant]
     Active Substance: SIMVASTATIN
  11. MULTI VIT [Concomitant]
  12. VITAMIN E [Concomitant]
     Active Substance: .ALPHA.-TOCOPHEROL
  13. VITAMIN B12 [Concomitant]
     Active Substance: CYANOCOBALAMIN

REACTIONS (1)
  - Seizure [None]

NARRATIVE: CASE EVENT DATE: 20141211
